FAERS Safety Report 9840229 (Version 2)
Quarter: 2014Q1

REPORT INFORMATION
  Report Type: Spontaneous
  Country: IE (occurrence: IE)
  Receive Date: 20140124
  Receipt Date: 20140124
  Transmission Date: 20141002
  Serious: Yes (Other)
  Sender: FDA-Public Use
  Company Number: PHHY2013IE141235

PATIENT
  Sex: Female

DRUGS (3)
  1. TEGRETOL [Suspect]
     Dosage: 1000 MG, DAILY (400 MG AT MORNING AND 600 MG AT NIGHT)
  2. TEGRETOL [Suspect]
     Dosage: DIRECT RELEASE
  3. TEGRETOL [Suspect]
     Dosage: MODIFIED RELEASE

REACTIONS (3)
  - Device related infection [Recovered/Resolved]
  - Convulsion [Recovered/Resolved]
  - Weight decreased [Unknown]
